FAERS Safety Report 7271092-X (Version None)
Quarter: 2011Q1

REPORT INFORMATION
  Report Type: 
  Country: None (occurrence: None)
  Receive Date: 20110202
  Receipt Date: 20110124
  Transmission Date: 20110831
  Serious: Yes (Life-Threatening, Hospitalization)
  Sender: FDA-Public Use
  Company Number: DO-GILEAD-2010-0034274

PATIENT
  Sex: Male
  Weight: 83.99 kg

DRUGS (4)
  1. MULTI-VITAMINS [Concomitant]
     Indication: SUPPLEMENTATION THERAPY
     Dates: start: 20090101
  2. TRUVADA [Suspect]
     Indication: HIV INFECTION
     Route: 048
     Dates: start: 20100409
  3. EFAVIRENZ [Suspect]
     Indication: HIV INFECTION
     Route: 048
     Dates: start: 20001102
  4. CITRACAL [Concomitant]
     Indication: SUPPLEMENTATION THERAPY
     Dates: start: 20031030

REACTIONS (1)
  - MYOCARDIAL INFARCTION [None]
